FAERS Safety Report 16544675 (Version 1)
Quarter: 2019Q3

REPORT INFORMATION
  Report Type: Spontaneous
  Country: US (occurrence: US)
  Receive Date: 20190528
  Receipt Date: 20190528
  Transmission Date: 20191004
  Serious: No
  Sender: FDA-Public Use
  Company Number: None

PATIENT
  Age: 70 Year
  Sex: Male

DRUGS (1)
  1. ERIVEDGE [Suspect]
     Active Substance: VISMODEGIB
     Indication: BASAL CELL CARCINOMA
     Route: 048
     Dates: start: 201904

REACTIONS (7)
  - Alopecia [None]
  - Nausea [None]
  - Anxiety [None]
  - Fatigue [None]
  - Ageusia [None]
  - Constipation [None]
  - Nervousness [None]
